FAERS Safety Report 6676441-9 (Version None)
Quarter: 2010Q2

REPORT INFORMATION
  Report Type: 
  Country: None (occurrence: None)
  Receive Date: 20100412
  Receipt Date: 20100401
  Transmission Date: 20101027
  Serious: Yes (Other)
  Sender: FDA-Public Use
  Company Number: PHHY2010MX19854

PATIENT
  Sex: Female

DRUGS (3)
  1. STALEVO 100 [Suspect]
     Indication: PARKINSON'S DISEASE
     Dosage: 2 TABLETS DAILY
     Route: 048
     Dates: start: 20090807
  2. ENALAPRIL MALEATE [Concomitant]
     Indication: HYPERTENSION
     Dosage: 2 TABLETS PER DAY
  3. AMBROXOL [Concomitant]
     Indication: COUGH
     Dosage: 1 TABLESPOON IN THE MORNING AND ONE AT NIGHT

REACTIONS (1)
  - INFARCTION [None]
